FAERS Safety Report 10046761 (Version 2)
Quarter: 2014Q2

REPORT INFORMATION
  Report Type: Spontaneous
  Country: US (occurrence: US)
  Receive Date: 20140331
  Receipt Date: 20140429
  Transmission Date: 20141212
  Serious: Yes (Other)
  Sender: FDA-Public Use
  Company Number: US-ROCHE-1369266

PATIENT
  Age: 50 Year
  Sex: Female

DRUGS (7)
  1. XOLAIR [Suspect]
     Indication: ASTHMA
     Dosage: ON 21/FEB/2014, SHE RECEIVED SUBCUNTANEOUS OMALIZUMAB AT A DOSE OF 300 MG MONTHLY.
     Route: 065
     Dates: start: 20140211
  2. SINGULAIR [Concomitant]
     Route: 065
  3. AZELASTINE HYDROCHLORIDE/FLUTICASONE PROPIONATE [Concomitant]
     Dosage: 1 SPRAY EACH NOSTRIL (DYMISTA)
     Route: 065
  4. ADVAIR [Concomitant]
     Indication: ASTHMA
     Dosage: 1 PUFF (500/50)
     Route: 065
     Dates: start: 20131203
  5. COMBIVENT [Concomitant]
     Dosage: RESCUE INHALER
     Route: 065
  6. SALINE NASAL SPRAY [Concomitant]
     Dosage: AS NEEDED
     Route: 065
  7. AMOXYCILLIN [Concomitant]
     Indication: OTITIS MEDIA
     Route: 048
     Dates: start: 20140211, end: 20140221

REACTIONS (11)
  - Cough [Unknown]
  - Chest discomfort [Unknown]
  - Throat tightness [Unknown]
  - Pruritus [Unknown]
  - Dizziness [Unknown]
  - Tongue disorder [Unknown]
  - Nausea [Unknown]
  - Feeling hot [Unknown]
  - Heart rate increased [Unknown]
  - Thirst [Unknown]
  - Fatigue [Unknown]
